FAERS Safety Report 13173248 (Version 2)
Quarter: 2020Q1

REPORT INFORMATION
  Report Type: Spontaneous
  Country: US (occurrence: US)
  Receive Date: 20170131
  Receipt Date: 20200206
  Transmission Date: 20200409
  Serious: Yes (Other)
  Sender: FDA-Public Use
  Company Number: US-ABBVIE-16K-163-1725080-00

PATIENT
  Age: 59 Year
  Sex: Female

DRUGS (3)
  1. HUMIRA [Suspect]
     Active Substance: ADALIMUMAB
     Indication: COMPLEX REGIONAL PAIN SYNDROME
  2. HUMIRA [Suspect]
     Active Substance: ADALIMUMAB
     Indication: FIBROMYALGIA
     Route: 058
  3. HUMIRA [Suspect]
     Active Substance: ADALIMUMAB
     Indication: RHEUMATOID ARTHRITIS
     Route: 058

REACTIONS (12)
  - Spinal fusion surgery [Unknown]
  - Shoulder arthroplasty [Unknown]
  - Chondropathy [Unknown]
  - Painful respiration [Unknown]
  - Arthrodesis [Unknown]
  - Joint dislocation [Unknown]
  - Procedural pain [Unknown]
  - Gait inability [Unknown]
  - Pain in extremity [Unknown]
  - Arthralgia [Unknown]
  - Abdominal discomfort [Unknown]
  - Nausea [Unknown]

NARRATIVE: CASE EVENT DATE: 20191128
